FAERS Safety Report 7450047-6 (Version None)
Quarter: 2011Q2

REPORT INFORMATION
  Report Type: 
  Country: None (occurrence: None)
  Receive Date: 20110502
  Receipt Date: 20101210
  Transmission Date: 20111010
  Serious: Yes (Hospitalization, Other)
  Sender: FDA-Public Use
  Company Number: US-BAYER-201036063NA

PATIENT
  Age: 41 Year
  Sex: Female
  Weight: 92.971 kg

DRUGS (6)
  1. YAZ [Suspect]
     Indication: ORAL CONTRACEPTION
     Dates: start: 20080801, end: 20090801
  2. WARFARIN [Concomitant]
     Dosage: UNK
     Dates: start: 20090807, end: 20091222
  3. IBUPROFEN [Concomitant]
     Dosage: UNK
     Dates: start: 20090801, end: 20091101
  4. VALTREX [Concomitant]
  5. ZITHROMAX [Concomitant]
  6. DELSYM [Concomitant]

REACTIONS (2)
  - THROMBOSIS [None]
  - PULMONARY EMBOLISM [None]
